FAERS Safety Report 15610542 (Version 2)
Quarter: 2019Q4

REPORT INFORMATION
  Report Type: Spontaneous
  Country: US (occurrence: US)
  Receive Date: 20181113
  Receipt Date: 20191104
  Transmission Date: 20200122
  Serious: No
  Sender: FDA-Public Use
  Company Number: US-ROCHE-2143697

PATIENT
  Sex: Male
  Weight: 40.86 kg

DRUGS (5)
  1. FLONASE [Concomitant]
     Active Substance: FLUTICASONE PROPIONATE
     Dosage: ONGOING; UNKNOWN
     Route: 045
     Dates: start: 20171201
  2. ALBUTEROL [SALBUTAMOL] [Concomitant]
     Active Substance: ALBUTEROL
     Dosage: ONGOING; UNKNOWN
     Route: 045
     Dates: start: 20171201
  3. PULMOZYME [Suspect]
     Active Substance: DORNASE ALFA
     Indication: METABOLIC DISORDER
     Dosage: ONGOING: UNKNOWN, AS DIRECTED
     Route: 050
     Dates: start: 20171205
  4. CYPROHEPTADINE. [Concomitant]
     Active Substance: CYPROHEPTADINE
     Dosage: ONGOING; UNKNOWN
     Route: 048
     Dates: start: 20181227
  5. AZITHROMYCIN ANHYDROUS. [Concomitant]
     Active Substance: AZITHROMYCIN ANHYDROUS
     Dosage: ONGOING; UNKNOWN
     Route: 048
     Dates: start: 20171201

REACTIONS (4)
  - Intentional product use issue [Unknown]
  - Product dose omission [Unknown]
  - No adverse event [Unknown]
  - Off label use [Unknown]
